FAERS Safety Report 4457179-5 (Version None)
Quarter: 2004Q3

REPORT INFORMATION
  Report Type: 
  Country: None (occurrence: None)
  Receive Date: 20040922
  Receipt Date: 20040901
  Transmission Date: 20050211
  Serious: Yes (Hospitalization)
  Sender: FDA-Public Use
  Company Number: USA040977135

PATIENT
  Sex: Female

DRUGS (3)
  1. CYMBALTA [Suspect]
     Indication: DEPRESSION
     Dosage: 30 MG DAY
     Dates: start: 20040101, end: 20040101
  2. ANTABUSE [Concomitant]
  3. ELAVIL [Concomitant]

REACTIONS (3)
  - HEPATIC ENZYME INCREASED [None]
  - SELF-MEDICATION [None]
  - VOMITING [None]
